FAERS Safety Report 14877398 (Version 1)
Quarter: 2018Q2

REPORT INFORMATION
  Report Type: Spontaneous
  Country: CN (occurrence: CN)
  Receive Date: 20180510
  Receipt Date: 20180510
  Transmission Date: 20180711
  Serious: Yes (Hospitalization)
  Sender: FDA-Public Use
  Company Number: CN-ACELLA PHARMACEUTICALS, LLC-2047579

PATIENT
  Age: 43 Year
  Sex: Female

DRUGS (1)
  1. LEVONORGESTREL AND ETHINYL ESTRADIOL TABLETS AND FERROUS BISGLYCINATE [Suspect]
     Active Substance: ETHINYL ESTRADIOL\LEVONORGESTREL

REACTIONS (12)
  - Pregnancy on oral contraceptive [None]
  - Epilepsy [Recovered/Resolved]
  - Neutrophil percentage increased [None]
  - Cerebral infarction [Recovered/Resolved]
  - Blood fibrinogen increased [None]
  - Blood sodium decreased [None]
  - Intracranial venous sinus thrombosis [Recovered/Resolved]
  - Maternal exposure during pregnancy [None]
  - White blood cell count increased [None]
  - Intracranial pressure increased [None]
  - Red blood cell count decreased [None]
  - Blood thyroid stimulating hormone decreased [None]
